FAERS Safety Report 8590596-0 (Version None)
Quarter: 2012Q3

REPORT INFORMATION
  Report Type: 
  Country: None (occurrence: None)
  Receive Date: 20120813
  Receipt Date: 20120806
  Transmission Date: 20120928
  Serious: Yes (Hospitalization)
  Sender: FDA-Public Use
  Company Number: BE-PFIZER INC-2012192242

PATIENT
  Sex: Female
  Weight: 83 kg

DRUGS (3)
  1. YASMIN [Concomitant]
     Indication: CONTRACEPTION
     Dosage: UNK
     Dates: start: 20020924
  2. LEVOTHYROXINE SODIUM [Concomitant]
     Indication: BLOOD THYROID STIMULATING HORMONE DECREASED
     Dosage: UNK
     Dates: start: 20020924
  3. GENOTROPIN [Suspect]
     Dosage: 0.6 MG, 7/WK
     Route: 058
     Dates: start: 20030520

REACTIONS (1)
  - BRAIN NEOPLASM [None]
